FAERS Safety Report 6577421-4 (Version None)
Quarter: 2010Q1

REPORT INFORMATION
  Report Type: 
  Country: None (occurrence: None)
  Receive Date: 20100211
  Receipt Date: 20100124
  Transmission Date: 20100710
  Serious: Yes (Death)
  Sender: FDA-Public Use
  Company Number: CA-ALLERGAN-1000987US

PATIENT
  Sex: Male

DRUGS (7)
  1. BOTOX [Suspect]
     Indication: MUSCLE SPASTICITY
     Dosage: 600 UNITS, SINGLE
     Route: 030
     Dates: start: 20091219, end: 20091219
  2. BOTOX [Suspect]
     Dosage: 750 UNK, UNK
     Route: 030
  3. RAMIPRIL [Concomitant]
  4. PAROXETINE HCL [Concomitant]
  5. COUMADIN [Concomitant]
  6. CRESTOR [Concomitant]
  7. TYLENOL-500 [Concomitant]

REACTIONS (1)
  - DEATH [None]
